FAERS Safety Report 5249445-0 (Version None)
Quarter: 2007Q1

REPORT INFORMATION
  Report Type: 
  Country: None (occurrence: None)
  Receive Date: 20070228
  Receipt Date: 20061103
  Transmission Date: 20070707
  Serious: Yes (Life-Threatening, Hospitalization, Other)
  Sender: FDA-Public Use
  Company Number: US-GLAXOSMITHKLINE-A0626141A

PATIENT
  Age: 85 Year
  Sex: Female

DRUGS (12)
  1. VALTREX [Suspect]
     Dosage: 1G THREE TIMES PER DAY
     Route: 048
  2. GLYBURIDE [Concomitant]
  3. GLUCOPHAGE [Concomitant]
  4. ASPIRIN [Concomitant]
  5. PRAVACHOL [Concomitant]
  6. ARICEPT [Concomitant]
  7. NAMENDA [Concomitant]
  8. AEROBID [Concomitant]
  9. PROVENTIL [Concomitant]
  10. DIOVAN [Concomitant]
  11. ZOLOFT [Concomitant]
  12. MOBIC [Concomitant]

REACTIONS (3)
  - BLOOD CREATININE INCREASED [None]
  - CREATININE RENAL CLEARANCE DECREASED [None]
  - RENAL FAILURE ACUTE [None]
